APPROVED DRUG PRODUCT: CELONTIN
Active Ingredient: METHSUXIMIDE
Strength: 300MG
Dosage Form/Route: CAPSULE;ORAL
Application: N010596 | Product #008 | TE Code: AB
Applicant: PARKE DAVIS DIV WARNER LAMBERT CO
Approved: Approved Prior to Jan 1, 1982 | RLD: Yes | RS: Yes | Type: RX